FAERS Safety Report 22397217 (Version 1)
Quarter: 2023Q2

REPORT INFORMATION
  Report Type: Spontaneous
  Country: FR (occurrence: FR)
  Receive Date: 20230602
  Receipt Date: 20230602
  Transmission Date: 20230722
  Serious: Yes (Other)
  Sender: FDA-Public Use
  Company Number: None

PATIENT
  Age: 64 Year
  Sex: Male
  Weight: 93 kg

DRUGS (5)
  1. ROSUVASTATIN [Suspect]
     Active Substance: ROSUVASTATIN
     Indication: Hypercholesterolaemia
     Dosage: 50MG UNTIL 2020 THEN 10MG,
     Route: 065
     Dates: start: 2011
  2. DOXYCYCLINE [Concomitant]
     Active Substance: DOXYCYCLINE
     Indication: Lyme disease
     Dosage: 200MG FOR 3 WEEKS
     Route: 065
  3. ASPIRIN [Concomitant]
     Active Substance: ASPIRIN
     Indication: Product used for unknown indication
  4. TELMISARTAN [Concomitant]
     Active Substance: TELMISARTAN
     Indication: Product used for unknown indication
  5. AMLODIPINE [Concomitant]
     Active Substance: AMLODIPINE BESYLATE
     Indication: Product used for unknown indication

REACTIONS (1)
  - Chronic cutaneous lupus erythematosus [Not Recovered/Not Resolved]

NARRATIVE: CASE EVENT DATE: 20221101
